FAERS Safety Report 18968263 (Version 1)
Quarter: 2021Q1

REPORT INFORMATION
  Report Type: Spontaneous
  Country: US (occurrence: US)
  Receive Date: 20210304
  Receipt Date: 20210304
  Transmission Date: 20210420
  Serious: Yes (Hospitalization)
  Sender: FDA-Public Use
  Company Number: US-UNITED THERAPEUTICS-UNT-2021-003552

PATIENT
  Age: 23 Year
  Sex: Male

DRUGS (3)
  1. REMODULIN [Suspect]
     Active Substance: TREPROSTINIL
     Indication: PULMONARY ARTERIAL HYPERTENSION
     Dosage: UNK UNK, CONTINUING
     Route: 058
     Dates: start: 201909
  2. REMODULIN [Suspect]
     Active Substance: TREPROSTINIL
     Dosage: 0.1025 ?G/KG, CONTINUING
     Route: 058
  3. REMODULIN [Suspect]
     Active Substance: TREPROSTINIL
     Dosage: 0.0892 ?G/KG, CONTINUING
     Route: 058
     Dates: start: 20191018

REACTIONS (3)
  - Nausea [Unknown]
  - Device malfunction [Unknown]
  - Vomiting [Unknown]

NARRATIVE: CASE EVENT DATE: 20210224
